FAERS Safety Report 4751305-6 (Version None)
Quarter: 2005Q3

REPORT INFORMATION
  Report Type: 
  Country: None (occurrence: None)
  Receive Date: 20050822
  Receipt Date: 20050808
  Transmission Date: 20060218
  Serious: Yes (Death, Other)
  Sender: FDA-Public Use
  Company Number: MEDI-0003596

PATIENT
  Age: 14 Year
  Sex: Female

DRUGS (3)
  1. ETHYOL [Suspect]
     Indication: CHEMOTHERAPY
     Dosage: 825 MG/M2, QD, INTRAVENOUS
     Route: 042
  2. CISPLATIN [Concomitant]
  3. ETOPOSIDE [Concomitant]

REACTIONS (8)
  - ANURIA [None]
  - DEAFNESS NEUROSENSORY [None]
  - DISEASE RECURRENCE [None]
  - HAEMODIALYSIS [None]
  - NEPHROPATHY TOXIC [None]
  - PERIPHERAL SENSORY NEUROPATHY [None]
  - RENAL FAILURE [None]
  - RENAL TUBULAR NECROSIS [None]
